FAERS Safety Report 9227600 (Version 2)
Quarter: 2013Q2

REPORT INFORMATION
  Report Type: Report from Study
  Country: US (occurrence: US)
  Receive Date: 20130412
  Receipt Date: 20130424
  Transmission Date: 20140414
  Serious: Yes (Death, Hospitalization)
  Sender: FDA-Public Use
  Company Number: PHEH2013US008284

PATIENT
  Age: 66 Year
  Sex: Female

DRUGS (1)
  1. GLEEVEC [Suspect]
     Indication: CHRONIC MYELOID LEUKAEMIA
     Dosage: 400 MG, DAILY
     Route: 048
     Dates: start: 20130304

REACTIONS (5)
  - Respiratory failure [Fatal]
  - Dyspnoea [Fatal]
  - Aspiration [Fatal]
  - Chronic myeloid leukaemia [Fatal]
  - Malignant neoplasm progression [Fatal]
